FAERS Safety Report 22011258 (Version 2)
Quarter: 2023Q2

REPORT INFORMATION
  Report Type: Spontaneous
  Country: US (occurrence: US)
  Receive Date: 20230220
  Receipt Date: 20230413
  Transmission Date: 20230721
  Serious: Yes (Other)
  Sender: FDA-Public Use
  Company Number: US-PFIZER INC-202300070634

PATIENT
  Age: 68 Year
  Sex: Female
  Weight: 64.41 kg

DRUGS (1)
  1. PREMARIN [Suspect]
     Active Substance: ESTROGENS, CONJUGATED
     Indication: Vulvovaginal dryness
     Dosage: UNK (APPLICATOR FILLED 1-2 TIMES PER WEEK)
     Route: 067

REACTIONS (7)
  - Spinal operation [Unknown]
  - Intervertebral disc operation [Unknown]
  - Multiple fractures [Recovered/Resolved]
  - Osteoporosis [Unknown]
  - Migraine [Unknown]
  - Back pain [Not Recovered/Not Resolved]
  - Off label use [Unknown]

NARRATIVE: CASE EVENT DATE: 20211130
